FAERS Safety Report 6667947-7 (Version None)
Quarter: 2010Q2

REPORT INFORMATION
  Report Type: 
  Country: None (occurrence: None)
  Receive Date: 20100405
  Receipt Date: 20100329
  Transmission Date: 20101027
  Serious: Yes (Hospitalization)
  Sender: FDA-Public Use
  Company Number: US-GILEAD-2010-0028204

PATIENT
  Sex: Female
  Weight: 62.652 kg

DRUGS (14)
  1. LETAIRIS [Suspect]
     Indication: PULMONARY ARTERIAL HYPERTENSION
     Route: 048
     Dates: start: 20090924
  2. ASPIRIN [Concomitant]
  3. MIDODRINE HYDROCHLORIDE [Concomitant]
  4. LEVAQUIN [Concomitant]
  5. PREDNISONE TAB [Concomitant]
  6. LOMOTIL [Concomitant]
  7. LUNESTA [Concomitant]
  8. LIDOCAINE-PRILOCAINE [Concomitant]
  9. RENAGEL [Concomitant]
  10. HUMALOG [Concomitant]
  11. LANTUS [Concomitant]
  12. RENAL CAPS [Concomitant]
  13. PROBIOTIC COMPLEX [Concomitant]
  14. MULTI-VITAMIN [Concomitant]

REACTIONS (1)
  - MUSCLE ATROPHY [None]
